FAERS Safety Report 5738690-3 (Version None)
Quarter: 2008Q2

REPORT INFORMATION
  Report Type: 
  Country: None (occurrence: None)
  Receive Date: 20080514
  Receipt Date: 20080514
  Transmission Date: 20081010
  Serious: Yes (Hospitalization, Other)
  Sender: FDA-Public Use
  Company Number: None

PATIENT
  Sex: Female

DRUGS (1)
  1. TRILEPTAL [Suspect]
     Indication: BIPOLAR DISORDER
     Dosage: ONE TID ORAL
     Route: 048
     Dates: start: 20071101

REACTIONS (3)
  - DRUG INEFFECTIVE [None]
  - FLIGHT OF IDEAS [None]
  - THERAPEUTIC RESPONSE UNEXPECTED WITH DRUG SUBSTITUTION [None]
